FAERS Safety Report 9742508 (Version 2)
Quarter: 2013Q4

REPORT INFORMATION
  Report Type: Spontaneous
  Country: US (occurrence: US)
  Receive Date: 20131210
  Receipt Date: 20131210
  Transmission Date: 20140711
  Serious: Yes (Other)
  Sender: FDA-Public Use
  Company Number: US-ENDO PHARMACEUTICALS INC.-PRED20130036

PATIENT
  Age: 56 Year
  Sex: Female

DRUGS (6)
  1. PREDNISONE TABLETS 10MG [Suspect]
     Indication: FOOD ALLERGY
     Route: 048
     Dates: start: 20130617, end: 20130618
  2. PREDNISONE TABLETS 10MG [Suspect]
     Indication: URTICARIA
  3. ZYRTEC [Concomitant]
     Indication: PRODUCT USED FOR UNKNOWN INDICATION
     Dosage: UNKNOWN
     Route: 048
     Dates: end: 20130617
  4. ZYRTEC [Concomitant]
     Route: 048
     Dates: start: 20130618
  5. PRILOSEC [Concomitant]
     Indication: PRODUCT USED FOR UNKNOWN INDICATION
     Dosage: UNKNOWN
     Route: 048
  6. BENADRYL [Concomitant]
     Indication: PRODUCT USED FOR UNKNOWN INDICATION
     Dosage: UNKNOWN
     Route: 048

REACTIONS (1)
  - Hypersensitivity [Recovered/Resolved]
